FAERS Safety Report 10632862 (Version 1)
Quarter: 2014Q4

REPORT INFORMATION
  Report Type: Spontaneous
  Country: US (occurrence: US)
  Receive Date: 20141205
  Receipt Date: 20141205
  Transmission Date: 20150529
  Serious: No
  Sender: FDA-Public Use
  Company Number: US-BRISTOL-MYERS SQUIBB COMPANY-21334115

PATIENT
  Sex: Female

DRUGS (1)
  1. ORENCIA [Suspect]
     Active Substance: ABATACEPT
     Dosage: LAST INJECTION ON 21AUG2014?NO OF INJ:4
     Route: 058
     Dates: start: 20140729

REACTIONS (6)
  - Influenza like illness [Unknown]
  - Headache [Unknown]
  - Malaise [Unknown]
  - Pain [Unknown]
  - Joint swelling [Unknown]
  - Chills [Unknown]

NARRATIVE: CASE EVENT DATE: 201408
